FAERS Safety Report 21155801 (Version 1)
Quarter: 2022Q3

REPORT INFORMATION
  Report Type: Report from Study
  Country: CA (occurrence: None)
  Receive Date: 20220801
  Receipt Date: 20220801
  Transmission Date: 20221027
  Serious: Yes (Other)
  Sender: FDA-Public Use
  Company Number: CA-PFIZER INC-202201011001

PATIENT
  Age: 60 Year
  Sex: Male

DRUGS (3)
  1. METHOTREXATE [Suspect]
     Active Substance: METHOTREXATE
     Indication: Product used for unknown indication
     Route: 048
  2. ENBREL [Concomitant]
     Active Substance: ETANERCEPT
     Route: 065
  3. SIMPONI [Concomitant]
     Active Substance: GOLIMUMAB
     Route: 065

REACTIONS (3)
  - C-reactive protein increased [Unknown]
  - Pain [Unknown]
  - Skin cancer [Unknown]
